FAERS Safety Report 24442529 (Version 2)
Quarter: 2024Q4

REPORT INFORMATION
  Report Type: Report from Study
  Country: US (occurrence: US)
  Receive Date: 20241016
  Receipt Date: 20241017
  Transmission Date: 20250114
  Serious: No
  Sender: ROCHE
  Company Number: US-ROCHE-3544783

PATIENT
  Age: 31 Year
  Sex: Male

DRUGS (2)
  1. HEMLIBRA [Suspect]
     Active Substance: EMICIZUMAB-KXWH
     Indication: Factor VIII deficiency
     Dosage: SPLIT INTO 2 INJECTIONS: 1.4ML FROM 2 VIALS IN 3ML SYRINGE, AND 0.7ML FROM 1 VIAL IN 1ML SYRINGE
     Route: 058
  2. HEMLIBRA [Suspect]
     Active Substance: EMICIZUMAB-KXWH
     Indication: Haemophilic arthropathy

REACTIONS (3)
  - Haemorrhage [Unknown]
  - Joint lock [Unknown]
  - Contusion [Unknown]
